FAERS Safety Report 12326068 (Version 2)
Quarter: 2023Q1

REPORT INFORMATION
  Report Type: Spontaneous
  Country: US (occurrence: US)
  Receive Date: 20160503
  Receipt Date: 20230223
  Transmission Date: 20230417
  Serious: Yes (Hospitalization, Other)
  Sender: FDA-Public Use
  Company Number: US-CIPLA-2016US04278

PATIENT

DRUGS (10)
  1. WARFARIN [Suspect]
     Active Substance: WARFARIN
     Indication: Atrial fibrillation
     Dosage: 70 MG PER WEEK (PRE OPERATIVELY)
     Route: 065
  2. WARFARIN [Suspect]
     Active Substance: WARFARIN
     Dosage: 20 MG PER WEEK (POST OPERATIVE WEEK 1) (28.6% OF PREOPERATIVE DOSE).
     Route: 065
  3. WARFARIN [Suspect]
     Active Substance: WARFARIN
     Dosage: 62.5 MG PER WEEK (POST OPERATIVE WEEK 2:89.3% OF PREOPERATIVE DOSE)
     Route: 065
  4. WARFARIN [Suspect]
     Active Substance: WARFARIN
     Dosage: 42.5 MG PER WEEK (POSTOPERATIVELY WEEK 03, 60.7% PERCENT OF PREOPERATIVE DOSE)
     Route: 065
  5. WARFARIN [Suspect]
     Active Substance: WARFARIN
     Dosage: 27.5 MG PER WEEK (POSTOPERATIVELY WEEK 4, 39.3% PREOPERATIVE DOSE)
     Route: 065
  6. WARFARIN [Suspect]
     Active Substance: WARFARIN
     Dosage: 55 MG PER WEEK (POSTOPERATIVELY WEEK 5, 78.6 % PREOPERATIVE DOSE)
     Route: 065
  7. WARFARIN [Suspect]
     Active Substance: WARFARIN
     Dosage: 52.5 MG PER WEEK (POST OPERATIVE WEEK 6, 75% PREOPERATIVE DOSE)
     Route: 065
  8. WARFARIN [Suspect]
     Active Substance: WARFARIN
     Dosage: 65 MG PER WEEK (POSTOPERATIVELY MONTH 3, 92.9 % PREOPERATIVE DOSE)
     Route: 065
  9. WARFARIN [Suspect]
     Active Substance: WARFARIN
     Dosage: 65 MG PER WEEK (POSTOPERATIVELY MONTH 6, 92.9 % PREOPERATIVE DOSE)
     Route: 065
  10. WARFARIN [Suspect]
     Active Substance: WARFARIN
     Dosage: 60 MG PER WEEK (POSTOPERATIVE YEAR 1, 85.7% PREOPERATIVE DOSE)
     Route: 065

REACTIONS (6)
  - Fatigue [Unknown]
  - Faeces discoloured [Unknown]
  - Gastrointestinal haemorrhage [Unknown]
  - Anticoagulation drug level above therapeutic [Unknown]
  - Hepatic enzyme increased [Unknown]
  - Diarrhoea [Unknown]
